FAERS Safety Report 6516486-2 (Version None)
Quarter: 2009Q4

REPORT INFORMATION
  Report Type: 
  Country: None (occurrence: None)
  Receive Date: 20091223
  Receipt Date: 20091210
  Transmission Date: 20100525
  Serious: Yes (Death, Hospitalization, Other)
  Sender: FDA-Public Use
  Company Number: US-BAYER-200943395GPV

PATIENT
  Age: 51 Year
  Sex: Female

DRUGS (6)
  1. REFLUDAN [Suspect]
     Indication: TROUSSEAU'S SYNDROME
     Route: 042
  2. REFLUDAN [Suspect]
     Route: 042
  3. REFLUDAN [Suspect]
     Route: 042
  4. REFLUDAN [Suspect]
     Dosage: WITH BRIEF INTERRUPTIONS FOR INVASIVE PROCEDURES
     Route: 058
  5. PACLITAXEL [Concomitant]
     Indication: DRUG USE FOR UNKNOWN INDICATION
     Route: 065
  6. CARBOPLATIN [Concomitant]
     Indication: DRUG USE FOR UNKNOWN INDICATION
     Route: 065

REACTIONS (4)
  - DEATH [None]
  - DRUG INTERACTION [None]
  - VASCULAR INSUFFICIENCY [None]
  - VENA CAVA THROMBOSIS [None]
